FAERS Safety Report 8594573-5 (Version None)
Quarter: 2012Q3

REPORT INFORMATION
  Report Type: 
  Country: None (occurrence: None)
  Receive Date: 20120815
  Receipt Date: 20120808
  Transmission Date: 20120928
  Serious: Yes (Death)
  Sender: FDA-Public Use
  Company Number: CH-ELI_LILLY_AND_COMPANY-CH201208002693

PATIENT
  Age: 45 Year
  Sex: Male
  Weight: 95 kg

DRUGS (9)
  1. GLICLAZIDE [Concomitant]
     Dosage: 30 MG, QD
     Route: 048
  2. NEBIVOLOL [Concomitant]
     Indication: ESSENTIAL HYPERTENSION
     Dosage: 5 MG, QD
     Route: 048
  3. ZOCOR [Concomitant]
     Dosage: 40 MG, QD
     Route: 048
  4. ZYPREXA [Suspect]
     Indication: SCHIZOPHRENIA
     Dosage: 30 MG, QD
     Dates: end: 20120706
  5. ZYPREXA [Suspect]
     Dosage: 10 MG, QD
     Dates: start: 20120706, end: 20120727
  6. PALIPERIDONE [Concomitant]
     Indication: SCHIZOPHRENIA
     Dosage: 6 MG, QD
     Route: 048
     Dates: start: 20120101
  7. FLUVOXAMINE MALEATE [Concomitant]
     Indication: SCHIZOPHRENIA
     Dosage: 100 MG, QD
  8. EZETIMIBE [Concomitant]
     Dosage: 10 MG, QD
  9. ASPIRIN [Concomitant]
     Dosage: 100 MG, QD
     Route: 048

REACTIONS (2)
  - CARDIAC FAILURE CONGESTIVE [None]
  - OVERDOSE [None]
